FAERS Safety Report 18464044 (Version 1)
Quarter: 2020Q4

REPORT INFORMATION
  Report Type: Report from Study
  Country: FR (occurrence: FR)
  Receive Date: 20201104
  Receipt Date: 20201104
  Transmission Date: 20210114
  Serious: Yes (Death, Other)
  Sender: FDA-Public Use
  Company Number: FR-JAZZ-2019-FR-008714

PATIENT

DRUGS (1)
  1. DEFITELIO [Suspect]
     Active Substance: DEFIBROTIDE SODIUM
     Indication: VENOOCCLUSIVE LIVER DISEASE
     Dosage: 25 MG/KG/DAY
     Route: 042
     Dates: start: 20170516, end: 20170606

REACTIONS (5)
  - Sepsis [Fatal]
  - Acute graft versus host disease in skin [Fatal]
  - Acute graft versus host disease in intestine [Fatal]
  - Disease progression [Fatal]
  - Graft versus host disease in liver [Fatal]

NARRATIVE: CASE EVENT DATE: 20170615
